FAERS Safety Report 4823277-7 (Version None)
Quarter: 2005Q4

REPORT INFORMATION
  Report Type: 
  Country: None (occurrence: None)
  Receive Date: 20051107
  Receipt Date: 20051026
  Transmission Date: 20060501
  Serious: Yes (Hospitalization)
  Sender: FDA-Public Use
  Company Number: 2005147383

PATIENT
  Age: 70 Year
  Sex: Male

DRUGS (3)
  1. NEURONTIN [Suspect]
     Indication: NEURALGIA
  2. ANTIHYPERTENSIVES          (ANTIHYPERTENSIVES) [Concomitant]
  3. ALL OTHER THERAPEUTIC PRODUCTS [Concomitant]

REACTIONS (3)
  - DIABETIC NEUROPATHY [None]
  - NEUROGENIC BLADDER [None]
  - PHARMACEUTICAL PRODUCT COMPLAINT [None]
